FAERS Safety Report 21061837 (Version 2)
Quarter: 2022Q3

REPORT INFORMATION
  Report Type: Spontaneous
  Country: US (occurrence: US)
  Receive Date: 20220710
  Receipt Date: 20220806
  Transmission Date: 20221027
  Serious: Yes (Hospitalization, Other)
  Sender: FDA-Public Use
  Company Number: US-UNITED THERAPEUTICS-UNT-2022-014982

PATIENT
  Age: 75 Year
  Sex: Female
  Weight: 70.295 kg

DRUGS (6)
  1. ORENITRAM [Interacting]
     Active Substance: TREPROSTINIL
     Indication: Pulmonary arterial hypertension
     Dosage: UNK
     Route: 048
     Dates: start: 20220302
  2. ORENITRAM [Interacting]
     Active Substance: TREPROSTINIL
     Dosage: 1.125 MG, TID
     Route: 048
  3. ORENITRAM [Interacting]
     Active Substance: TREPROSTINIL
     Indication: Pulmonary arterial hypertension
     Dosage: UNK
     Route: 048
  4. ORENITRAM [Interacting]
     Active Substance: TREPROSTINIL
     Indication: Pulmonary arterial hypertension
     Dosage: UNK
     Route: 048
  5. ELIQUIS [Concomitant]
     Active Substance: APIXABAN
     Indication: Product used for unknown indication
     Dosage: UNK
     Route: 065
  6. SILDENAFIL CITRATE [Concomitant]
     Active Substance: SILDENAFIL CITRATE
     Indication: Product used for unknown indication
     Dosage: UNK
     Route: 065

REACTIONS (4)
  - Hypervolaemia [Unknown]
  - Cardiogenic shock [Unknown]
  - Hypotension [Unknown]
  - Drug interaction [Unknown]

NARRATIVE: CASE EVENT DATE: 20220701
